FAERS Safety Report 24330890 (Version 1)
Quarter: 2024Q3

REPORT INFORMATION
  Report Type: Other
  Country: CN (occurrence: CN)
  Receive Date: 20240918
  Receipt Date: 20240918
  Transmission Date: 20241016
  Serious: Yes (Death)
  Sender: BIONPHARMA
  Company Number: CN-Bion-013862

PATIENT
  Age: 35 Year
  Sex: Male

DRUGS (5)
  1. DEXAMETHASONE [Suspect]
     Active Substance: DEXAMETHASONE
     Indication: T-cell lymphoma
  2. METHOTREXATE [Concomitant]
     Active Substance: METHOTREXATE
     Indication: T-cell lymphoma
  3. ETOPOSIDE [Concomitant]
     Active Substance: ETOPOSIDE
     Indication: T-cell lymphoma
  4. IFOSFAMIDE [Concomitant]
     Active Substance: IFOSFAMIDE
     Indication: T-cell lymphoma
  5. ASPARAGINASE [Concomitant]
     Active Substance: ASPARAGINASE
     Indication: T-cell lymphoma

REACTIONS (1)
  - Drug ineffective [Fatal]
